FAERS Safety Report 5973651-0 (Version None)
Quarter: 2008Q4

REPORT INFORMATION
  Report Type: 
  Country: None (occurrence: None)
  Receive Date: 20081201
  Receipt Date: 20081118
  Transmission Date: 20090506
  Serious: Yes (Life-Threatening, Hospitalization)
  Sender: FDA-Public Use
  Company Number: JP-SANOFI-SYNTHELABO-A01200809232

PATIENT
  Sex: Male

DRUGS (9)
  1. ONEALFA [Concomitant]
     Indication: DRUG USE FOR UNKNOWN INDICATION
     Dosage: 0.5 MCG
     Route: 065
     Dates: start: 20030114, end: 20080706
  2. MYTELASE [Suspect]
     Indication: MUSCULAR WEAKNESS
     Dosage: 15 MG
     Route: 048
     Dates: start: 20040428
  3. PREDONINE [Concomitant]
     Indication: DRUG USE FOR UNKNOWN INDICATION
     Dosage: 10 MG
     Route: 065
     Dates: start: 20030114, end: 20080706
  4. AMIODARONE HYDROCHLORIDE [Concomitant]
     Indication: DRUG USE FOR UNKNOWN INDICATION
     Dosage: 400 MG
     Route: 048
     Dates: start: 20040707, end: 20040709
  5. AMIODARONE HYDROCHLORIDE [Concomitant]
     Dosage: 200 MG
     Route: 048
     Dates: start: 20040710, end: 20040712
  6. AMIODARONE HYDROCHLORIDE [Concomitant]
     Dosage: 100 MG
     Route: 048
     Dates: start: 20040713
  7. AMIODARONE HYDROCHLORIDE [Concomitant]
     Dosage: 125MG/10MIN, 250MG/6H, 375MG:18H
     Route: 042
     Dates: start: 20040705, end: 20040705
  8. AMIODARONE HYDROCHLORIDE [Concomitant]
     Dosage: 518.75/24H
     Route: 042
     Dates: start: 20040706, end: 20040713
  9. ZANTAC [Concomitant]
     Indication: DRUG USE FOR UNKNOWN INDICATION
     Dosage: 150 MG
     Route: 065
     Dates: start: 20030114, end: 20080706

REACTIONS (6)
  - BRUGADA SYNDROME [None]
  - BUNDLE BRANCH BLOCK RIGHT [None]
  - ELECTROCARDIOGRAM ST SEGMENT ELEVATION [None]
  - LOSS OF CONSCIOUSNESS [None]
  - VENTRICULAR EXTRASYSTOLES [None]
  - VENTRICULAR FIBRILLATION [None]
